FAERS Safety Report 9191059 (Version 1)
Quarter: 2013Q1

REPORT INFORMATION
  Report Type: Spontaneous
  Country: US (occurrence: US)
  Receive Date: 20130326
  Receipt Date: 20130326
  Transmission Date: 20140127
  Serious: No
  Sender: FDA-Public Use
  Company Number: US-009507513-1303USA009925

PATIENT
  Age: 39 Year
  Sex: Female
  Weight: 53.61 kg

DRUGS (1)
  1. IMPLANON [Suspect]
     Indication: CONTRACEPTION
     Dosage: 1 ROD, 3 YEARS
     Dates: start: 20100319

REACTIONS (2)
  - Incorrect drug administration duration [Unknown]
  - Expired drug administered [Unknown]
